FAERS Safety Report 20346683 (Version 2)
Quarter: 2022Q1

REPORT INFORMATION
  Report Type: Spontaneous
  Country: US (occurrence: US)
  Receive Date: 20220118
  Receipt Date: 20220204
  Transmission Date: 20220423
  Serious: Yes (Other)
  Sender: FDA-Public Use
  Company Number: US-BIOVITRUM-2022US00261

PATIENT
  Sex: Male

DRUGS (11)
  1. KINERET [Suspect]
     Active Substance: ANAKINRA
     Indication: Rheumatoid arthritis
     Route: 058
     Dates: start: 202112
  2. MELOXICAM [Concomitant]
     Active Substance: MELOXICAM
  3. GABAPENTIN [Concomitant]
     Active Substance: GABAPENTIN
  4. ALLEGRA [Concomitant]
     Active Substance: FEXOFENADINE HYDROCHLORIDE
  5. METOPROLOL [Concomitant]
     Active Substance: METOPROLOL
  6. PEPCID [Concomitant]
     Active Substance: FAMOTIDINE
  7. OXYCODONE [Concomitant]
     Active Substance: OXYCODONE
  8. VALACYCLOVIR [Concomitant]
     Active Substance: VALACYCLOVIR HYDROCHLORIDE
  9. ZOLPIDEM TARTRATE [Concomitant]
     Active Substance: ZOLPIDEM TARTRATE
  10. CYCLOBENZAPRINE [Concomitant]
     Active Substance: CYCLOBENZAPRINE
  11. VITAMIN D3 [Concomitant]
     Active Substance: CHOLECALCIFEROL

REACTIONS (4)
  - Hepatic failure [Unknown]
  - Drug hypersensitivity [Unknown]
  - Injection site rash [Unknown]
  - Injection site nodule [Unknown]
